FAERS Safety Report 8333622-6 (Version None)
Quarter: 2012Q2

REPORT INFORMATION
  Report Type: 
  Country: None (occurrence: None)
  Receive Date: 20120503
  Receipt Date: 20101223
  Transmission Date: 20120825
  Serious: No
  Sender: FDA-Public Use
  Company Number: US-TEVA-2010006591

PATIENT
  Age: 27 Year
  Sex: Female

DRUGS (2)
  1. NUVIGIL [Suspect]
     Indication: NARCOLEPSY
     Route: 048
  2. NUVIGIL [Suspect]
     Indication: CATAPLEXY

REACTIONS (1)
  - DIARRHOEA [None]
